FAERS Safety Report 20446985 (Version 1)
Quarter: 2022Q1

REPORT INFORMATION
  Report Type: Spontaneous
  Country: US (occurrence: US)
  Receive Date: 20220209
  Receipt Date: 20220209
  Transmission Date: 20220424
  Serious: No
  Sender: FDA-Public Use
  Company Number: US-HORIZON THERAPEUTICS-HZN-2021-002370

PATIENT
  Sex: Male

DRUGS (2)
  1. ACTIMMUNE [Suspect]
     Active Substance: INTERFERON GAMMA-1B
     Indication: Testis cancer
     Dosage: 0.5 ML,THREE TIMES A WEEK.
     Route: 058
  2. ACTIMMUNE [Suspect]
     Active Substance: INTERFERON GAMMA-1B
     Indication: Non-Hodgkin^s lymphoma stage IV

REACTIONS (1)
  - Off label use [Unknown]
